FAERS Safety Report 17945975 (Version 1)
Quarter: 2020Q2

REPORT INFORMATION
  Report Type: Spontaneous
  Country: IT (occurrence: IT)
  Receive Date: 20200625
  Receipt Date: 20200625
  Transmission Date: 20200714
  Serious: Yes (Other)
  Sender: FDA-Public Use
  Company Number: NVSC2020IT175335

PATIENT
  Age: 29 Year
  Sex: Female

DRUGS (1)
  1. METHYLPREDNISOLONE. [Suspect]
     Active Substance: METHYLPREDNISOLONE
     Indication: ENCEPHALITIS AUTOIMMUNE
     Dosage: 1 G BOLUSES (7 DAYS)
     Route: 065

REACTIONS (6)
  - Catatonia [Unknown]
  - Drug ineffective for unapproved indication [Unknown]
  - Neurological decompensation [Unknown]
  - Coma [Unknown]
  - Seizure [Unknown]
  - Dyskinesia [Unknown]
